FAERS Safety Report 8743556 (Version 2)
Quarter: 2012Q4

REPORT INFORMATION
  Report Type: 
  Country: US (occurrence: US)
  Receive Date: 20120824
  Receipt Date: 20121019
  Transmission Date: 20130627
  Serious: Yes (Other)
  Sender: FDA-Public Use
  Company Number: US-TEVA-354718USA

PATIENT
  Age: 28 Year
  Sex: Female

DRUGS (2)
  1. NUVIGIL [Suspect]
  2. ORAL CONTRACEPTIVE NOS [Concomitant]

REACTIONS (1)
  - Deep vein thrombosis [Unknown]
